FAERS Safety Report 9433965 (Version 1)
Quarter: 2013Q3

REPORT INFORMATION
  Report Type: Spontaneous
  Country: US (occurrence: US)
  Receive Date: 20130801
  Receipt Date: 20130801
  Transmission Date: 20140515
  Serious: No
  Sender: FDA-Public Use
  Company Number: US-009507513-1307USA016750

PATIENT
  Sex: Female

DRUGS (5)
  1. NASONEX [Suspect]
     Dosage: 50 (UNITS UNSPECIFIED)
     Route: 055
  2. PREMARIN [Concomitant]
  3. PROMETRIUM [Concomitant]
  4. CRESTOR [Concomitant]
  5. LUNESTA [Concomitant]

REACTIONS (1)
  - Cushing^s syndrome [Not Recovered/Not Resolved]
